FAERS Safety Report 5756118-4 (Version None)
Quarter: 2008Q2

REPORT INFORMATION
  Report Type: 
  Country: None (occurrence: None)
  Receive Date: 20080602
  Receipt Date: 20080523
  Transmission Date: 20081010
  Serious: Yes (Hospitalization, Other)
  Sender: FDA-Public Use
  Company Number: BE-ABBOTT-08P-013-0434103-00

PATIENT
  Sex: Male

DRUGS (7)
  1. NORVIR [Suspect]
     Indication: HIV INFECTION
     Dates: start: 20071224, end: 20080116
  2. NORVIR [Suspect]
     Dates: start: 20080129
  3. ABACAVIR SULFATE/LAMIVUDINE [Suspect]
     Indication: HIV INFECTION
     Dates: start: 20071224, end: 20080116
  4. FOSAMPRENAVIR [Concomitant]
     Indication: HIV INFECTION
     Dates: start: 20071224, end: 20080116
  5. FOSAMPRENAVIR [Concomitant]
     Dates: start: 20080129
  6. TENOFOVIR DISOPROXIL FUMARATE [Concomitant]
     Indication: HIV INFECTION
     Dates: start: 20071224
  7. LAMIVUDINE [Concomitant]
     Indication: HIV INFECTION
     Dates: start: 20071224

REACTIONS (12)
  - CARDIAC FAILURE [None]
  - CARDIAC FAILURE ACUTE [None]
  - CARDIOVASCULAR DISORDER [None]
  - CHEST PAIN [None]
  - COUGH [None]
  - DYSPNOEA [None]
  - FEELING HOT [None]
  - HAEMODYNAMIC INSTABILITY [None]
  - PULMONARY OEDEMA [None]
  - RESPIRATORY DISTRESS [None]
  - VASCULITIS [None]
  - VERTIGO [None]
